FAERS Safety Report 11232506 (Version 4)
Quarter: 2018Q3

REPORT INFORMATION
  Report Type: Spontaneous
  Country: US (occurrence: US)
  Receive Date: 20150701
  Receipt Date: 20180716
  Transmission Date: 20181010
  Serious: Yes (Hospitalization, Other)
  Sender: FDA-Public Use
  Company Number: US-DSJP-DSU-2015-119935

PATIENT
  Age: 62 Year
  Sex: Male
  Weight: 83.9 kg

DRUGS (6)
  1. BENICAR [Suspect]
     Active Substance: OLMESARTAN MEDOXOMIL
     Dosage: 10 MG, QD
     Route: 048
     Dates: start: 20101207, end: 2012
  2. BENICAR [Suspect]
     Active Substance: OLMESARTAN MEDOXOMIL
     Dosage: 5 MG TABS ?  HALF ?1 DAILYUNK
     Dates: start: 20060614, end: 20081222
  3. BENICAR [Suspect]
     Active Substance: OLMESARTAN MEDOXOMIL
     Dosage: 20 MG, 1 ? HALF TAB QD
     Dates: start: 20081222, end: 20101207
  4. BENICAR [Suspect]
     Active Substance: OLMESARTAN MEDOXOMIL
     Dosage: 5 MG TABS ? HALF ? 1 DAILY
     Dates: start: 20050120, end: 20060105
  5. ASPIRINE [Concomitant]
     Active Substance: ASPIRIN
     Indication: PRODUCT USED FOR UNKNOWN INDICATION
     Dosage: UNK
     Dates: start: 2001
  6. BENICAR [Suspect]
     Active Substance: OLMESARTAN MEDOXOMIL
     Indication: HYPERTENSION
     Dosage: 20 MG, 1 ? HALF TAB QD
     Route: 048
     Dates: start: 20030224, end: 20041101

REACTIONS (18)
  - Appendicectomy [Unknown]
  - Acute kidney injury [Recovering/Resolving]
  - Diverticulum intestinal [Unknown]
  - Cholelithiasis [Recovered/Resolved]
  - Muscular weakness [Unknown]
  - Adrenal insufficiency [Unknown]
  - Intestinal transit time increased [Unknown]
  - Drug dependence [Unknown]
  - Cataract [Not Recovered/Not Resolved]
  - Sprue-like enteropathy [Recovering/Resolving]
  - Neuropathy peripheral [Unknown]
  - Coeliac disease [Recovering/Resolving]
  - Syncope [Recovering/Resolving]
  - Spinal compression fracture [Unknown]
  - Myopathy [Unknown]
  - Osteopenia [Unknown]
  - Barrett^s oesophagus [Unknown]
  - Drug administration error [Unknown]

NARRATIVE: CASE EVENT DATE: 20050420
